FAERS Safety Report 6347591-1 (Version None)
Quarter: 2009Q3

REPORT INFORMATION
  Report Type: 
  Country: None (occurrence: None)
  Receive Date: 20090910
  Receipt Date: 20080526
  Transmission Date: 20100115
  Serious: Yes (Other)
  Sender: FDA-Public Use
  Company Number: US-ROCHE-568507

PATIENT
  Weight: 2.2 kg

DRUGS (3)
  1. PYRIMETHAMINE/SULFADOXINE [Suspect]
     Dosage: 500 MG SULFADOXINE AND 25 MG PYRIMETHAMINE PER TABLET, 3 TABLETS 4 WEEKS APART
     Route: 064
  2. FERROUS SULFATE TAB [Concomitant]
  3. FOLIC ACID [Concomitant]

REACTIONS (3)
  - DEATH NEONATAL [None]
  - KERNICTERUS [None]
  - SMALL FOR DATES BABY [None]
